FAERS Safety Report 9051300 (Version 2)
Quarter: 2013Q1

REPORT INFORMATION
  Report Type: Report from Study
  Country: DE (occurrence: DE)
  Receive Date: 20130206
  Receipt Date: 20130227
  Transmission Date: 20140127
  Serious: Yes (Death)
  Sender: FDA-Public Use
  Company Number: PHHY2013DE010988

PATIENT
  Age: 71 Year
  Sex: Male

DRUGS (2)
  1. AFINITOR [Suspect]
     Indication: BREAST CANCER METASTATIC
     Dosage: 10 MG, QD
     Dates: start: 20130119, end: 20130128
  2. EXEMESTANE [Concomitant]
     Indication: BREAST CANCER METASTATIC
     Dosage: 25 MG, QD
     Dates: start: 20130119, end: 20130128

REACTIONS (4)
  - Multi-organ failure [Fatal]
  - Malignant neoplasm progression [Fatal]
  - Breast cancer metastatic [Fatal]
  - Malaise [Fatal]
